FAERS Safety Report 25877712 (Version 3)
Quarter: 2025Q4

REPORT INFORMATION
  Report Type: Report from Study
  Country: JP (occurrence: JP)
  Receive Date: 20251003
  Receipt Date: 20251024
  Transmission Date: 20260117
  Serious: Yes (Hospitalization)
  Sender: EISAI
  Company Number: JP-009507513-2333930

PATIENT
  Age: 77 Year
  Sex: Female

DRUGS (23)
  1. LENVATINIB [Suspect]
     Active Substance: LENVATINIB
     Indication: Pleural mesothelioma malignant
     Route: 048
     Dates: start: 20250710
  2. LENVATINIB [Suspect]
     Active Substance: LENVATINIB
     Dosage: DOSE REDUCED
     Route: 048
  3. PEMETREXED [Suspect]
     Active Substance: PEMETREXED
     Indication: Pleural mesothelioma malignant
     Route: 042
     Dates: start: 20250710
  4. PEMETREXED [Suspect]
     Active Substance: PEMETREXED
     Dosage: DOSE REDUCED
     Route: 042
  5. CARBOPLATIN [Suspect]
     Active Substance: CARBOPLATIN
     Indication: Pleural mesothelioma malignant
     Route: 042
     Dates: start: 20250710
  6. CARBOPLATIN [Suspect]
     Active Substance: CARBOPLATIN
     Route: 042
  7. PEMBROLIZUMAB [Suspect]
     Active Substance: PEMBROLIZUMAB
     Indication: Pleural mesothelioma malignant
     Route: 042
     Dates: start: 20250710, end: 20250710
  8. VITAMINS [Concomitant]
     Active Substance: VITAMINS
     Indication: Premedication
     Dates: start: 20250704
  9. UREA [Concomitant]
     Active Substance: UREA
     Indication: Prophylaxis
     Dosage: DOSE AND FREQUENCY UNKNOWN
  10. CANDESARTAN CILEXETIL [Concomitant]
     Active Substance: CANDESARTAN CILEXETIL
     Indication: Hypertension
     Route: 048
  11. AMLODIPINE BESYLATE [Concomitant]
     Active Substance: AMLODIPINE BESYLATE
     Indication: Hypertension
     Route: 048
  12. BROTIZOLAM [Concomitant]
     Active Substance: BROTIZOLAM
     Indication: Insomnia
     Route: 048
  13. ALFACALCIDOL [Concomitant]
     Active Substance: ALFACALCIDOL
     Indication: Osteoporosis
     Route: 048
  14. BAZEDOXIFENE ACETATE [Concomitant]
     Active Substance: BAZEDOXIFENE ACETATE
     Indication: Osteoporosis
     Route: 048
  15. LOXOPROFEN SODIUM DIHYDRATE [Concomitant]
     Active Substance: LOXOPROFEN SODIUM DIHYDRATE
     Indication: Chondrocalcinosis
     Dosage: DOSE UNKNOWN
     Route: 048
     Dates: start: 20250728
  16. REBAMIPIDE [Concomitant]
     Active Substance: REBAMIPIDE
     Indication: Gastric haemorrhage
     Dosage: DOSE UNKNOWN
     Route: 048
     Dates: start: 20250728
  17. SENNOSIDES A AND B [Concomitant]
     Active Substance: SENNOSIDES A AND B
     Indication: Constipation
     Dosage: DOSE UNKNOWN
     Dates: start: 20250728
  18. Heparinoid [Concomitant]
     Indication: Palmar-plantar erythrodysaesthesia syndrome
     Dosage: DOSE UNKNOWN
     Dates: start: 20250731
  19. BETAMETHASONE SODIUM PHOSPHATE [Concomitant]
     Active Substance: BETAMETHASONE SODIUM PHOSPHATE
     Indication: Uveitis
     Dosage: DOSE AND FREQUENCY UNKNOWN
     Route: 047
  20. DEXAMETHASONE SODIUM PHOSPHATE [Concomitant]
     Active Substance: DEXAMETHASONE SODIUM PHOSPHATE
     Indication: Premedication
     Dates: start: 20250710
  21. PALONOSETRON HYDROCHLORIDE [Concomitant]
     Active Substance: PALONOSETRON HYDROCHLORIDE
     Indication: Premedication
  22. FOSNETUPITANT CHLORIDE HYDROCHLORIDE [Concomitant]
     Active Substance: FOSNETUPITANT CHLORIDE HYDROCHLORIDE
     Indication: Premedication
     Dates: start: 20250710
  23. METHYLCOBALAMIN [Concomitant]
     Active Substance: METHYLCOBALAMIN
     Indication: Premedication
     Dates: start: 20250703

REACTIONS (1)
  - Anaemia [Recovered/Resolved]

NARRATIVE: CASE EVENT DATE: 20250925
